FAERS Safety Report 11519024 (Version 1)
Quarter: 2015Q3

REPORT INFORMATION
  Report Type: Spontaneous
  Country: US (occurrence: US)
  Receive Date: 20150917
  Receipt Date: 20150917
  Transmission Date: 20151125
  Serious: Yes (Other)
  Sender: FDA-Public Use
  Company Number: US-WATSON-2015-13927

PATIENT
  Sex: Male

DRUGS (1)
  1. TESTOSTERONE CYPIONATE (UNKNOWN) [Suspect]
     Active Substance: TESTOSTERONE CYPIONATE
     Indication: ANDROGEN REPLACEMENT THERAPY
     Dosage: UNKNOWN
     Route: 065
     Dates: start: 201308, end: 201401

REACTIONS (4)
  - Cerebrovascular accident [Unknown]
  - Heart injury [Unknown]
  - Pain [Unknown]
  - Emotional disorder [Unknown]

NARRATIVE: CASE EVENT DATE: 201401
